FAERS Safety Report 8560925 (Version 2)
Quarter: 2012Q4

REPORT INFORMATION
  Report Type: Spontaneous
  Country: FR (occurrence: None)
  Receive Date: 20120508
  Receipt Date: 20120907
  Transmission Date: 20130627
  Serious: Yes (Death, Hospitalization)
  Sender: FDA-Public Use
  Company Number: 2012000103

PATIENT
  Age: 68 Year
  Sex: Female

DRUGS (9)
  1. ACEON [Suspect]
     Indication: HYPERTENSION
     Dosage: 5 MG, QD, ORAL
     Route: 048
     Dates: end: 20110913
  2. DIGOXIN [Suspect]
     Indication: PRODUCT USED FOR UNKNOWN INDICATION
     Dosage: 0.125 MG, QOD, ORAL
     Route: 048
     Dates: end: 20110913
  3. BISOPROLOL FUMARATE [Suspect]
     Indication: PRODUCT USED FOR UNKNOWN INDICATION
     Dosage: 5 MG, QD
     Dates: end: 20110913
  4. LASILIX [Suspect]
     Route: 048
  5. SINTROM [Concomitant]
  6. REPAGLINIDE [Concomitant]
  7. CRESTOR [Concomitant]
  8. NEXIUM [Concomitant]
  9. BROMAZEPAM (BROMAZEPAM) [Concomitant]

REACTIONS (13)
  - Cardiogenic shock [None]
  - Fall [None]
  - Head injury [None]
  - Hyperkalaemia [None]
  - Overdose [None]
  - Atrial fibrillation [None]
  - Bundle branch block right [None]
  - Cholestasis [None]
  - Jaundice [None]
  - Renal failure [None]
  - Cardioactive drug level increased [None]
  - Pulmonary arterial hypertension [None]
  - Dilatation ventricular [None]
